FAERS Safety Report 5088138-X (Version None)
Quarter: 2006Q3

REPORT INFORMATION
  Report Type: 
  Country: None (occurrence: None)
  Receive Date: 20060727
  Receipt Date: 20060504
  Transmission Date: 20061208
  Serious: Yes (Other)
  Sender: FDA-Public Use
  Company Number: 2006001044

PATIENT
  Age: 77 Year
  Sex: Male
  Weight: 115.6672 kg

DRUGS (8)
  1. LYRICA [Suspect]
     Indication: DIABETIC NEUROPATHY
     Dosage: 100 MG (50 MG,2 IN 1 D),ORAL
     Route: 048
     Dates: start: 20050101, end: 20060101
  2. METOPROLOL (METOPROLOL) [Concomitant]
  3. WARFARIN SODIUM [Concomitant]
  4. LESCOL [Concomitant]
  5. IMIPRAMINE [Concomitant]
  6. TAMSULOSIN HCL [Concomitant]
  7. VITAMINS (VITAMINS) [Concomitant]
  8. HUMULIN 70/30 [Concomitant]

REACTIONS (5)
  - ARTHRALGIA [None]
  - DRUG INEFFECTIVE [None]
  - INSOMNIA [None]
  - PAIN [None]
  - PARAESTHESIA [None]
